FAERS Safety Report 8478778-X (Version None)
Quarter: 2012Q2

REPORT INFORMATION
  Report Type: 
  Country: None (occurrence: None)
  Receive Date: 20120629
  Receipt Date: 20120410
  Transmission Date: 20120825
  Serious: Yes (Hospitalization)
  Sender: FDA-Public Use
  Company Number: ES-GLAXOSMITHKLINE-Z0016038A

PATIENT
  Sex: Female
  Weight: 49 kg

DRUGS (24)
  1. DEXAMETHASONE [Suspect]
     Indication: DIFFUSE LARGE B-CELL LYMPHOMA RECURRENT
     Dosage: 40MG EVERY 3 WEEKS
     Route: 048
     Dates: start: 20120328
  2. PREGABALIN [Concomitant]
     Indication: ANALGESIC THERAPY
     Dosage: 75MG THREE TIMES PER DAY
     Route: 048
     Dates: start: 20120307, end: 20120402
  3. ONDANSETRON [Concomitant]
     Indication: VOMITING
     Dosage: 8MG THREE TIMES PER DAY
     Route: 042
     Dates: start: 20120327
  4. CIPROFLOXACIN [Concomitant]
     Indication: PYREXIA
     Dosage: 400MG TWICE PER DAY
     Route: 042
     Dates: start: 20120330, end: 20120404
  5. PREGABALIN [Concomitant]
     Dosage: 150MG PER DAY
     Route: 048
     Dates: start: 20120403, end: 20120404
  6. LINEZOLID [Concomitant]
     Indication: ENTEROCOCCAL BACTERAEMIA
     Dosage: 600MG TWICE PER DAY
     Route: 042
     Dates: start: 20120407
  7. CYTARABINE [Suspect]
     Indication: DIFFUSE LARGE B-CELL LYMPHOMA RECURRENT
     Dosage: 4GM2 EVERY 3 WEEKS
     Route: 042
     Dates: start: 20120329
  8. FUROSEMIDE [Concomitant]
     Indication: DIURETIC THERAPY
     Dosage: 20MG TWICE PER DAY
     Route: 042
     Dates: start: 20120327, end: 20120330
  9. SULFAMETHOXAZOLE AND TRIMETHOPRIM [Concomitant]
     Indication: ANTIFUNGAL PROPHYLAXIS
     Dosage: 800MG FOUR TIMES PER WEEK
     Route: 048
     Dates: start: 20120327, end: 20120407
  10. PREGABALIN [Concomitant]
     Dosage: 75MG TWICE PER DAY
     Route: 048
     Dates: start: 20120403, end: 20120404
  11. METOCLOPRAMIDE [Concomitant]
     Indication: VOMITING
     Dosage: 10MG THREE TIMES PER DAY
     Route: 042
     Dates: start: 20120328
  12. CEFTAZIDIME [Concomitant]
     Indication: INFECTION PROPHYLAXIS
     Dosage: 2G THREE TIMES PER DAY
     Route: 042
     Dates: start: 20120404, end: 20120407
  13. FOLIC ACID [Concomitant]
     Dosage: 5MG THREE TIMES PER WEEK
     Route: 048
     Dates: start: 20120327
  14. OMEPRAZOLE [Concomitant]
     Indication: PROPHYLAXIS
     Dosage: 20MG TWICE PER DAY
     Route: 048
     Dates: start: 20120327
  15. LORAZEPAM [Concomitant]
     Indication: SLEEP DISORDER
     Dosage: 1MG AT NIGHT
     Route: 048
     Dates: start: 20120327, end: 20120404
  16. TRAMADOL HCL [Concomitant]
     Indication: ANALGESIC THERAPY
     Dosage: 50MG THREE TIMES PER DAY
     Route: 048
     Dates: start: 20120307, end: 20120402
  17. PEGFILGRASTIM [Concomitant]
     Indication: PROPHYLAXIS
     Dosage: 6MG SINGLE DOSE
     Route: 058
     Dates: start: 20120401, end: 20120401
  18. CHLORPROMAZINE HCL [Concomitant]
     Indication: VOMITING
     Dosage: 8.5MG PER DAY
     Route: 042
     Dates: start: 20120330, end: 20120404
  19. ACETAMINOPHEN [Concomitant]
     Indication: ANALGESIC THERAPY
     Dosage: 1G FOUR TIMES PER DAY
     Route: 042
  20. CISPLATIN [Suspect]
     Indication: DIFFUSE LARGE B-CELL LYMPHOMA RECURRENT
     Dosage: 100MGM2 EVERY 3 WEEKS
     Route: 042
     Dates: start: 20120328
  21. CALCIUM CARBONATE + CHOLECALCIFEROL [Concomitant]
     Indication: OSTEOPOROSIS
     Dosage: 500MG PER DAY
     Route: 048
     Dates: start: 20120327
  22. OFATUMUMAB [Suspect]
     Indication: DIFFUSE LARGE B-CELL LYMPHOMA RECURRENT
     Route: 042
     Dates: start: 20120327
  23. METAMIZOL [Concomitant]
     Indication: ANALGESIC THERAPY
     Dosage: 2G FOUR TIMES PER DAY
     Route: 042
     Dates: start: 20120406
  24. 6ALPHA-METHYLPREDNISOLONE [Concomitant]
     Indication: ANALGESIC THERAPY
     Dosage: 30MG PER DAY
     Route: 042
     Dates: start: 20120409

REACTIONS (3)
  - FATIGUE [None]
  - VOMITING [None]
  - DECREASED APPETITE [None]
